FAERS Safety Report 5897915-4 (Version None)
Quarter: 2008Q3

REPORT INFORMATION
  Report Type: 
  Country: None (occurrence: None)
  Receive Date: 20080924
  Receipt Date: 20080924
  Transmission Date: 20090109
  Serious: Yes (Hospitalization)
  Sender: FDA-Public Use
  Company Number: None

PATIENT
  Sex: Female
  Weight: 55.5 kg

DRUGS (7)
  1. ABRAXANE [Suspect]
     Indication: UTERINE CANCER
     Dosage: 395 MG D1/CYCLE 042
     Dates: start: 20080917, end: 20080917
  2. VANDETANIB [Suspect]
     Indication: UTERINE CANCER
     Dosage: 200 MG QD 047
     Dates: start: 20080917
  3. CIPROFLOXACIN [Concomitant]
  4. METFORMIN HCL [Concomitant]
  5. TYLENOL W/ CODEINE [Concomitant]
  6. FERROUS SULFATE [Concomitant]
  7. CALCIUM 1 [Concomitant]

REACTIONS (3)
  - CULTURE URINE POSITIVE [None]
  - PNEUMONIA [None]
  - STAPHYLOCOCCAL INFECTION [None]
